FAERS Safety Report 7909138-5 (Version None)
Quarter: 2011Q4

REPORT INFORMATION
  Report Type: 
  Country: None (occurrence: None)
  Receive Date: 20111111
  Receipt Date: 20101111
  Transmission Date: 20120403
  Serious: No
  Sender: FDA-Public Use
  Company Number: US-GLAXOSMITHKLINE-A0892021A

PATIENT
  Sex: Male

DRUGS (3)
  1. CARVEDILOL [Suspect]
     Indication: CARDIAC FAILURE CONGESTIVE
     Dosage: 6.25MG TWICE PER DAY
     Route: 048
     Dates: start: 20100301, end: 20100601
  2. NO CONCURRENT MEDICATION [Concomitant]
  3. COREG CR [Suspect]
     Indication: CARDIAC FAILURE CONGESTIVE
     Dosage: 10MG PER DAY
     Route: 048
     Dates: start: 20100601

REACTIONS (3)
  - HEADACHE [None]
  - DRUG INEFFECTIVE [None]
  - ARTHRALGIA [None]
